FAERS Safety Report 4273107-X (Version None)
Quarter: 2004Q1

REPORT INFORMATION
  Report Type: 
  Country: None (occurrence: None)
  Receive Date: 20040114
  Receipt Date: 20031229
  Transmission Date: 20041129
  Serious: Yes (Hospitalization)
  Sender: FDA-Public Use
  Company Number: DSA_23805_2004

PATIENT
  Age: 73 Year
  Sex: Female

DRUGS (4)
  1. BI-TILDIEM [Suspect]
     Indication: TACHYCARDIA
     Dates: start: 20030912, end: 20031001
  2. COVERSYL [Suspect]
     Dates: start: 20030901, end: 20031001
  3. MOTILIUM [Suspect]
     Dates: start: 20030901, end: 20031001
  4. INIPOMP [Suspect]
     Dates: start: 20031006, end: 20031001

REACTIONS (5)
  - EOSINOPHILIA [None]
  - PRURITUS [None]
  - PYREXIA [None]
  - RASH MACULO-PAPULAR [None]
  - TOXIC SKIN ERUPTION [None]
